FAERS Safety Report 8983218 (Version 1)
Quarter: 2012Q4

REPORT INFORMATION
  Report Type: 
  Country: BR (occurrence: BR)
  Receive Date: 20121224
  Receipt Date: 20121224
  Transmission Date: 20130627
  Serious: Yes (Death, Hospitalization)
  Sender: FDA-Public Use
  Company Number: PHHY2012BR118991

PATIENT
  Age: 66 Year
  Sex: Male

DRUGS (1)
  1. DICLOFENAC [Suspect]

REACTIONS (7)
  - Septic shock [Fatal]
  - Drug reaction with eosinophilia and systemic symptoms [Fatal]
  - Skin exfoliation [Fatal]
  - Dermatitis exfoliative [Fatal]
  - Liver function test abnormal [Fatal]
  - Leukocytosis [Fatal]
  - Eosinophilia [Fatal]
